FAERS Safety Report 13581704 (Version 3)
Quarter: 2017Q2

REPORT INFORMATION
  Report Type: Spontaneous
  Country: FR (occurrence: FR)
  Receive Date: 20170525
  Receipt Date: 20170614
  Transmission Date: 20170830
  Serious: Yes (Other)
  Sender: FDA-Public Use
  Company Number: FR-PFIZER INC-2017223506

PATIENT
  Age: 71 Year
  Sex: Female

DRUGS (9)
  1. TAZOCILLINE [Concomitant]
     Active Substance: PIPERACILLIN SODIUM\TAZOBACTAM SODIUM
     Indication: PERITONITIS
     Dosage: ^4 G THREE TIMES A DAY^
     Dates: start: 20170411, end: 20170417
  2. FRAGMINE [Suspect]
     Active Substance: DALTEPARIN SODIUM
     Dosage: ONE DOSE FROM (2500 IU ANTI XA/0.2 ML) ONCE A DAY
     Route: 058
     Dates: start: 20170420, end: 20170422
  3. TAHOR [Suspect]
     Active Substance: ATORVASTATIN CALCIUM
     Indication: HYPERCHOLESTEROLAEMIA
     Dosage: 10 MG ONCE A DAY
     Route: 048
     Dates: start: 20170418, end: 20170423
  4. EUPANTOL [Suspect]
     Active Substance: PANTOPRAZOLE SODIUM
     Dosage: 40 MG ONCE A DAY
     Route: 042
     Dates: start: 20170405, end: 20170422
  5. FLUCONAZOLE KABI [Suspect]
     Active Substance: FLUCONAZOLE
     Indication: CANDIDA INFECTION
     Dosage: 400 MG ONCE A DAY
     Route: 042
     Dates: start: 20170416, end: 20170424
  6. LOXEN L P [Suspect]
     Active Substance: NICARDIPINE HYDROCHLORIDE
     Indication: HYPERTENSION
     Dosage: 100 MG ONCE A DAY (2 DOSE FORMS ONCE A DAY)
     Route: 048
     Dates: start: 20170420, end: 20170423
  7. PARACETAMOL [Suspect]
     Active Substance: ACETAMINOPHEN
     Indication: PAIN
     Dosage: 1 G FOUR TIMES A DAY
     Route: 048
     Dates: start: 201704, end: 201704
  8. CORTANCYL [Concomitant]
     Active Substance: PREDNISONE
     Dosage: 5 MG THREE TIMES A DAY
     Route: 048
  9. FLUCONAZOLE. [Concomitant]
     Active Substance: FLUCONAZOLE
     Indication: PERITONITIS
     Dosage: 400 MG PER DAY
     Dates: start: 20170406, end: 20170411

REACTIONS (1)
  - Agranulocytosis [Recovered/Resolved]

NARRATIVE: CASE EVENT DATE: 20170421
